FAERS Safety Report 7298077-1 (Version None)
Quarter: 2011Q1

REPORT INFORMATION
  Report Type: 
  Country: None (occurrence: None)
  Receive Date: 20110217
  Receipt Date: 20110208
  Transmission Date: 20110831
  Serious: Yes (Hospitalization, Other)
  Sender: FDA-Public Use
  Company Number: PHHY2010MX42990

PATIENT
  Sex: Female

DRUGS (2)
  1. ACLASTA [Suspect]
     Indication: OSTEOPOROSIS
     Dosage: 5 MG PER YEAR
     Dates: start: 20091113
  2. CALCIUM [Concomitant]
     Dosage: UNK

REACTIONS (7)
  - HEADACHE [None]
  - TREMOR [None]
  - BONE PAIN [None]
  - PYREXIA [None]
  - ROAD TRAFFIC ACCIDENT [None]
  - FOOT FRACTURE [None]
  - CHILLS [None]
